FAERS Safety Report 8929170 (Version 1)
Quarter: 2012Q4

REPORT INFORMATION
  Report Type: Spontaneous
  Country: US (occurrence: None)
  Receive Date: 20121126
  Receipt Date: 20121126
  Transmission Date: 20130627
  Serious: Yes (Hospitalization)
  Sender: FDA-Public Use
  Company Number: None

PATIENT
  Sex: Female
  Weight: 145 kg

DRUGS (1)
  1. DIAZEPAM [Suspect]
     Indication: SLEEP DISORDER
     Dosage: one a day
     Dates: start: 20081106, end: 20110920

REACTIONS (1)
  - Hypoaesthesia [None]
